FAERS Safety Report 20687126 (Version 1)
Quarter: 2022Q2

REPORT INFORMATION
  Report Type: Spontaneous
  Country: CN (occurrence: CN)
  Receive Date: 20220407
  Receipt Date: 20220407
  Transmission Date: 20220721
  Serious: Yes (Other)
  Sender: FDA-Public Use
  Company Number: CN-JNJFOC-20220365633

PATIENT
  Sex: Male

DRUGS (2)
  1. ZYTIGA [Suspect]
     Active Substance: ABIRATERONE ACETATE
     Indication: Prostate cancer metastatic
     Route: 048
  2. PREDNISOLONE [Suspect]
     Active Substance: PREDNISOLONE
     Indication: Prostate cancer metastatic
     Dosage: 5MG/TIME, 1 CYCLE WAS COMPOSED OF 4 WEEKS
     Route: 048

REACTIONS (10)
  - Neurotoxicity [Unknown]
  - Sodium retention [Unknown]
  - Fluid retention [Unknown]
  - Blood potassium decreased [Unknown]
  - Hypertension [Unknown]
  - Vomiting [Unknown]
  - Oedema [Unknown]
  - Diarrhoea [Unknown]
  - Transaminases increased [Unknown]
  - Urinary tract infection [Unknown]
